FAERS Safety Report 24648225 (Version 2)
Quarter: 2024Q4

REPORT INFORMATION
  Report Type: Spontaneous
  Country: JP (occurrence: JP)
  Receive Date: 20241121
  Receipt Date: 20241203
  Transmission Date: 20250115
  Serious: Yes (Hospitalization)
  Sender: OTSUKA
  Company Number: JP-OTSUKA-2024_027437

PATIENT
  Age: 8 Decade
  Sex: Female

DRUGS (1)
  1. ABILIFY MAINTENA [Suspect]
     Active Substance: ARIPIPRAZOLE
     Indication: Bipolar disorder
     Dosage: 400MG/SHOT
     Route: 030
     Dates: start: 20220222, end: 20220518

REACTIONS (1)
  - Manic symptom [Unknown]

NARRATIVE: CASE EVENT DATE: 20220501
